FAERS Safety Report 22069371 (Version 1)
Quarter: 2023Q1

REPORT INFORMATION
  Report Type: Report from Study
  Country: US (occurrence: US)
  Receive Date: 20230307
  Receipt Date: 20230307
  Transmission Date: 20230417
  Serious: Yes (Hospitalization)
  Sender: FDA-Public Use
  Company Number: US-TAKEDA-2023TUS020311

PATIENT
  Age: 47 Year
  Sex: Female
  Weight: 94.785 kg

DRUGS (24)
  1. PARATHYROID HORMONE [Suspect]
     Active Substance: PARATHYROID HORMONE
     Indication: Hypoparathyroidism
     Route: 058
  2. PARATHYROID HORMONE [Suspect]
     Active Substance: PARATHYROID HORMONE
     Indication: Hypoparathyroidism
     Route: 058
  3. PARATHYROID HORMONE [Suspect]
     Active Substance: PARATHYROID HORMONE
     Indication: Hypoparathyroidism
     Route: 058
  4. ANASTROZOLE [Concomitant]
     Active Substance: ANASTROZOLE
     Indication: Breast cancer
     Dosage: UNK
     Route: 048
     Dates: start: 20181210
  5. DESVENLAFAXINE SUCCINATE [Concomitant]
     Active Substance: DESVENLAFAXINE SUCCINATE
     Indication: Depression
     Dosage: UNK
     Route: 048
     Dates: start: 20170302
  6. DEXAMETHASONE [Concomitant]
     Active Substance: DEXAMETHASONE
     Indication: Inflammation
     Dosage: UNK
     Route: 048
     Dates: start: 20181213
  7. DICLOFENAC [Concomitant]
     Active Substance: DICLOFENAC
     Indication: Pain
     Dosage: UNK
     Route: 061
     Dates: start: 20180917
  8. EVEROLIMUS [Concomitant]
     Active Substance: EVEROLIMUS
     Indication: Neoplasm malignant
     Dosage: UNK
     Route: 048
     Dates: start: 20181211
  9. HYDROCODONE BITARTRATE AND ACETAMINOPHEN [Concomitant]
     Active Substance: ACETAMINOPHEN\HYDROCODONE BITARTRATE
     Indication: Pain
     Dosage: UNK
     Route: 048
     Dates: start: 20160517
  10. LEVOTHYROXINE [Concomitant]
     Active Substance: LEVOTHYROXINE
     Indication: Hypothyroidism
     Dosage: UNK
     Route: 048
     Dates: start: 20160803
  11. METFORMIN [Concomitant]
     Active Substance: METFORMIN HYDROCHLORIDE
     Indication: Diabetes mellitus
     Dosage: UNK
     Route: 048
     Dates: start: 20180824
  12. METHYLPHENIDATE [Concomitant]
     Active Substance: METHYLPHENIDATE
     Indication: Attention deficit hyperactivity disorder
     Dosage: UNK
     Route: 048
     Dates: start: 20180928
  13. ONDANSETRON [Concomitant]
     Active Substance: ONDANSETRON
     Indication: Nausea
     Dosage: UNK
     Route: 048
     Dates: start: 20160503
  14. PREGABALIN [Concomitant]
     Active Substance: PREGABALIN
     Indication: Neuralgia
     Dosage: UNK
     Route: 048
     Dates: start: 20180222
  15. PYRIDOXINE HYDROCHLORIDE [Concomitant]
     Active Substance: PYRIDOXINE HYDROCHLORIDE
     Indication: Nutritional supplementation
     Dosage: UNK
     Route: 048
     Dates: start: 20170223
  16. SPIRONOLACTONE [Concomitant]
     Active Substance: SPIRONOLACTONE
     Indication: Acne
     Dosage: UNK
     Route: 048
     Dates: start: 20181228
  17. TRAZODONE HCL [Concomitant]
     Active Substance: TRAZODONE HYDROCHLORIDE
     Indication: Depression
     Dosage: UNK
     Route: 048
     Dates: start: 20170302
  18. TRETINOIN [Concomitant]
     Active Substance: TRETINOIN
     Indication: Acne
     Dosage: UNK
     Route: 061
     Dates: start: 20181228
  19. ZOFRAN [Concomitant]
     Active Substance: ONDANSETRON HYDROCHLORIDE
     Indication: Nausea
     Dosage: UNK
     Route: 048
     Dates: start: 20210519
  20. LACTATED RINGERS SOLUTION [Concomitant]
     Active Substance: CALCIUM CHLORIDE\POTASSIUM CHLORIDE\SODIUM CHLORIDE\SODIUM LACTATE
     Dosage: UNK
     Route: 042
     Dates: start: 20221203, end: 20221204
  21. TYLENOL [Concomitant]
     Active Substance: ACETAMINOPHEN
     Indication: Pyrexia
     Dosage: UNK
     Route: 048
     Dates: start: 20221203, end: 20221204
  22. CALCITRIOL [Concomitant]
     Active Substance: CALCITRIOL
     Dosage: UNK
     Dates: start: 20180924
  23. CALCIUM CITRATE [Concomitant]
     Active Substance: CALCIUM CITRATE
     Dosage: 5 DOSAGE FORM, BID
     Dates: start: 20180419
  24. VITAMIN D [Concomitant]
     Active Substance: VITAMIN D NOS
     Dosage: 50000 INTERNATIONAL UNIT, 1/WEEK
     Route: 048
     Dates: start: 20171113

REACTIONS (1)
  - Influenza like illness [Recovered/Resolved]

NARRATIVE: CASE EVENT DATE: 20221203
